FAERS Safety Report 13789664 (Version 3)
Quarter: 2017Q4

REPORT INFORMATION
  Report Type: Report from Study
  Country: CO (occurrence: CO)
  Receive Date: 20170725
  Receipt Date: 20171127
  Transmission Date: 20180320
  Serious: Yes (Hospitalization, Other)
  Sender: FDA-Public Use
  Company Number: CO-AMGEN-COLSL2017051513

PATIENT
  Age: 67 Year
  Sex: Female

DRUGS (1)
  1. VECTIBIX [Suspect]
     Active Substance: PANITUMUMAB
     Indication: COLORECTAL CANCER METASTATIC
     Dosage: 300 MG, Q2WK
     Route: 042
     Dates: start: 20170328

REACTIONS (16)
  - Dermatitis contact [Not Recovered/Not Resolved]
  - Abdominal rigidity [Recovered/Resolved]
  - Gastritis [Not Recovered/Not Resolved]
  - Aphthous ulcer [Not Recovered/Not Resolved]
  - Carcinoembryonic antigen increased [Not Recovered/Not Resolved]
  - Face oedema [Not Recovered/Not Resolved]
  - Abdominal pain upper [Not Recovered/Not Resolved]
  - Gangrene [Not Recovered/Not Resolved]
  - Stoma site pain [Not Recovered/Not Resolved]
  - Nausea [Recovered/Resolved]
  - Inflammation [Not Recovered/Not Resolved]
  - Discomfort [Not Recovered/Not Resolved]
  - Cystitis [Recovering/Resolving]
  - Dizziness [Not Recovered/Not Resolved]
  - Dry skin [Not Recovered/Not Resolved]
  - Feeling hot [Not Recovered/Not Resolved]

NARRATIVE: CASE EVENT DATE: 2017
